FAERS Safety Report 9486369 (Version 4)
Quarter: 2013Q4

REPORT INFORMATION
  Report Type: Report from Study
  Country: DE (occurrence: DE)
  Receive Date: 20130829
  Receipt Date: 20131002
  Transmission Date: 20140711
  Serious: Yes (Death, Hospitalization)
  Sender: FDA-Public Use
  Company Number: DE-EISAI INC-E7389-04070-SOL-DE

PATIENT
  Sex: Female
  Weight: 64 kg

DRUGS (2)
  1. HALAVEN [Suspect]
     Indication: BREAST CANCER
     Route: 041
     Dates: start: 20130723, end: 20130723
  2. HALAVEN [Suspect]
     Route: 041
     Dates: start: 20130903

REACTIONS (3)
  - General physical health deterioration [Recovering/Resolving]
  - Pneumonia [Fatal]
  - Anaemia [Unknown]
